FAERS Safety Report 6215879-0 (Version None)
Quarter: 2009Q2

REPORT INFORMATION
  Report Type: 
  Country: None (occurrence: None)
  Receive Date: 20090605
  Receipt Date: 20090528
  Transmission Date: 20091009
  Serious: No
  Sender: FDA-Public Use
  Company Number: GB-ROCHE-631733

PATIENT
  Sex: Female
  Weight: 139.7 kg

DRUGS (8)
  1. XENICAL [Suspect]
     Indication: OBESITY
     Route: 048
     Dates: start: 20090304, end: 20090401
  2. NORETISTERONE [Concomitant]
     Dosage: REPORTED INDICATION: REGULATE PERIODS
     Route: 048
     Dates: start: 20090101
  3. TEMAZEPAM [Concomitant]
     Dosage: TAKEN AT NIGHT. REPORTED INDICATION: SLEEP
     Route: 048
     Dates: start: 20080801
  4. IBUPROFEN [Concomitant]
     Dosage: REPORTED AS ^TAKEN AS REQUIRED^
     Route: 048
  5. MONTELUKAST [Concomitant]
     Indication: ASTHMA
     Dosage: TAKEN AT NIGHT
     Route: 048
     Dates: start: 20070101
  6. VENTOLIN [Concomitant]
     Indication: ASTHMA
     Dosage: TAKEN AS REQUIRED
     Route: 055
  7. PROCHLORPERAZIN [Concomitant]
     Indication: VERTIGO
     Route: 048
  8. CARBAMAZEPINE [Concomitant]
     Indication: EPILEPSY
     Dosage: 500MG TAKEN MORNING, 700MG AT NIGHT.
     Route: 048

REACTIONS (1)
  - LARYNGITIS [None]
